FAERS Safety Report 25907195 (Version 1)
Quarter: 2025Q4

REPORT INFORMATION
  Report Type: Spontaneous
  Country: US (occurrence: None)
  Receive Date: 20251009
  Receipt Date: 20251009
  Transmission Date: 20260117
  Serious: Yes (Hospitalization)
  Sender: FDA-CTU
  Company Number: None

PATIENT
  Sex: Male

DRUGS (3)
  1. DOVATO [Suspect]
     Active Substance: DOLUTEGRAVIR SODIUM\LAMIVUDINE
     Indication: HIV infection
     Dosage: FREQUENCY : DAILY;?
     Route: 048
     Dates: start: 20250715
  2. PYRIDOXINE HYDROCHLORIDE [Suspect]
     Active Substance: PYRIDOXINE HYDROCHLORIDE
     Indication: Pulmonary tuberculosis
     Dosage: FREQUENCY : DAILY;?
     Route: 048
     Dates: start: 20250625
  3. ISONIAZID [Suspect]
     Active Substance: ISONIAZID

REACTIONS (2)
  - Abdominal pain [None]
  - Liver disorder [None]
